FAERS Safety Report 4777965-1 (Version None)
Quarter: 2005Q3

REPORT INFORMATION
  Report Type: 
  Country: None (occurrence: None)
  Receive Date: 20050921
  Receipt Date: 20050901
  Transmission Date: 20060218
  Serious: Yes (Hospitalization)
  Sender: FDA-Public Use
  Company Number: FR_050907035

PATIENT
  Age: 55 Year
  Sex: Female
  Weight: 57 kg

DRUGS (6)
  1. GEMZAR [Suspect]
     Indication: CONNECTIVE TISSUE NEOPLASM
     Dosage: 900 MG OTHER
     Route: 042
     Dates: start: 20050622
  2. TAXOTERE [Concomitant]
  3. OXYCONTIN [Concomitant]
  4. OMEPRAZOLE [Concomitant]
  5. AUGMENTIN '125' [Concomitant]
  6. SOLUPRED               (PREDNISOLONE SODIUM SULFOBENZOATE) [Concomitant]

REACTIONS (5)
  - LEUKOPENIA [None]
  - NEUTROPHIL COUNT INCREASED [None]
  - PYREXIA [None]
  - RASH [None]
  - THROMBOCYTOPENIC PURPURA [None]
